FAERS Safety Report 5293254-3 (Version None)
Quarter: 2007Q2

REPORT INFORMATION
  Report Type: 
  Country: None (occurrence: None)
  Receive Date: 20070411
  Receipt Date: 20070404
  Transmission Date: 20071010
  Serious: Yes (Hospitalization)
  Sender: FDA-Public Use
  Company Number: RO-GENENTECH-234992

PATIENT
  Age: 70 Year
  Sex: Male

DRUGS (1)
  1. MABTHERA [Suspect]
     Indication: LYMPHOMA
     Dosage: 100 MG, UNK
     Route: 042
     Dates: start: 20061101, end: 20061219

REACTIONS (2)
  - HEPATOCELLULAR DAMAGE [None]
  - JAUNDICE [None]
